FAERS Safety Report 26185701 (Version 1)
Quarter: 2025Q4

REPORT INFORMATION
  Report Type: Spontaneous
  Country: US (occurrence: US)
  Receive Date: 20251222
  Receipt Date: 20251222
  Transmission Date: 20260119
  Serious: No
  Sender: USAntibiotics
  Company Number: US-USAN-USUSAN2025SPO000034

PATIENT

DRUGS (2)
  1. AUGMENTIN [Suspect]
     Active Substance: AMOXICILLIN\CLAVULANATE POTASSIUM
  2. DUPILUMAB [Suspect]
     Active Substance: DUPILUMAB
     Indication: Ear infection

REACTIONS (4)
  - Ear infection [Recovering/Resolving]
  - Rash [Unknown]
  - Eczema [Unknown]
  - Therapeutic response shortened [Unknown]
